FAERS Safety Report 6867192-6 (Version None)
Quarter: 2010Q3

REPORT INFORMATION
  Report Type: 
  Country: None (occurrence: None)
  Receive Date: 20100722
  Receipt Date: 20100713
  Transmission Date: 20110219
  Serious: Yes (Hospitalization)
  Sender: FDA-Public Use
  Company Number: B0663084B

PATIENT
  Sex: Female
  Weight: 95 kg

DRUGS (8)
  1. LAPATINIB [Suspect]
     Indication: BREAST CANCER
     Dosage: 1500MG PER DAY
     Route: 048
     Dates: start: 20100215, end: 20100705
  2. PACLITAXEL [Suspect]
     Indication: BREAST CANCER
     Dosage: 80MGM2 WEEKLY
     Route: 042
     Dates: start: 20091012, end: 20091229
  3. TRASTUZUMAB [Suspect]
     Indication: BREAST CANCER
     Dosage: 2MGK WEEKLY
     Route: 042
     Dates: start: 20091012, end: 20091229
  4. TAMOXIFEN CITRATE [Concomitant]
     Dosage: 1TAB TWICE PER DAY
  5. TENAXUM [Concomitant]
     Indication: HYPERTENSION
     Dates: start: 20030101
  6. BISOCARD [Concomitant]
     Indication: HYPERTENSION
     Dates: start: 20030101
  7. DIROTON [Concomitant]
     Indication: HYPERTENSION
     Dates: start: 20030101
  8. LACIPIL [Concomitant]
     Indication: HYPERTENSION
     Dates: start: 20030101

REACTIONS (9)
  - ATRIAL TACHYCARDIA [None]
  - BRADYCARDIA [None]
  - CIRCULATORY COLLAPSE [None]
  - ERYTHEMA [None]
  - HYPOCHLORAEMIA [None]
  - HYPONATRAEMIA [None]
  - HYPOTENSION [None]
  - PALPITATIONS [None]
  - TYPE 2 DIABETES MELLITUS [None]
